FAERS Safety Report 7948688-2 (Version None)
Quarter: 2011Q4

REPORT INFORMATION
  Report Type: 
  Country: None (occurrence: None)
  Receive Date: 20111130
  Receipt Date: 20111130
  Transmission Date: 20120403
  Serious: No
  Sender: FDA-Public Use
  Company Number: None

PATIENT
  Age: 37 Year
  Sex: Male
  Weight: 61.4 kg

DRUGS (2)
  1. VANCOMYCIN [Suspect]
     Indication: CELLULITIS
     Dosage: 1 G, 1.25 G
     Route: 042
     Dates: start: 20110217, end: 20110226
  2. IBUPROFEN [Concomitant]

REACTIONS (1)
  - NEPHROPATHY TOXIC [None]
